FAERS Safety Report 19078053 (Version 1)
Quarter: 2021Q1

REPORT INFORMATION
  Report Type: Spontaneous
  Country: US (occurrence: US)
  Receive Date: 20210331
  Receipt Date: 20210331
  Transmission Date: 20210420
  Serious: Yes (Other)
  Sender: FDA-Public Use
  Company Number: US-BEH-2021129825

PATIENT
  Sex: Female

DRUGS (4)
  1. MAXZIDE [Concomitant]
     Active Substance: HYDROCHLOROTHIAZIDE\TRIAMTERENE
     Route: 065
  2. SYNTHROID [Concomitant]
     Active Substance: LEVOTHYROXINE SODIUM
     Route: 065
  3. HIZENTRA [Suspect]
     Active Substance: HUMAN IMMUNOGLOBULIN G
     Dosage: UNK
     Route: 058
  4. HIZENTRA [Suspect]
     Active Substance: HUMAN IMMUNOGLOBULIN G
     Indication: IMMUNODEFICIENCY
     Dosage: 2 GRAM, 5 DAYS PER WEEK
     Route: 058
     Dates: start: 202101

REACTIONS (3)
  - Thrombosis [Not Recovered/Not Resolved]
  - Vascular rupture [Not Recovered/Not Resolved]
  - Injection site swelling [Not Recovered/Not Resolved]
